FAERS Safety Report 14647755 (Version 1)
Quarter: 2018Q1

REPORT INFORMATION
  Report Type: Report from Study
  Country: FR (occurrence: FR)
  Receive Date: 20180316
  Receipt Date: 20180316
  Transmission Date: 20180509
  Serious: Yes (Other)
  Sender: FDA-Public Use
  Company Number: FR-PFIZER INC-2018104418

PATIENT
  Age: 72 Year
  Sex: Female

DRUGS (4)
  1. CLARITHROMYCINE [Interacting]
     Active Substance: CLARITHROMYCIN
     Dosage: UNK
  2. DASATINIB. [Interacting]
     Active Substance: DASATINIB
     Indication: CHRONIC MYELOID LEUKAEMIA
     Dosage: UNK
  3. ROCEPHINE [Interacting]
     Active Substance: CEFTRIAXONE SODIUM
     Dosage: UNK
  4. MEDROL [Suspect]
     Active Substance: METHYLPREDNISOLONE
     Dosage: UNK

REACTIONS (2)
  - Renal impairment [Recovered/Resolved]
  - Drug interaction [Unknown]

NARRATIVE: CASE EVENT DATE: 20170912
